FAERS Safety Report 24371758 (Version 2)
Quarter: 2024Q4

REPORT INFORMATION
  Report Type: Spontaneous
  Country: US (occurrence: US)
  Receive Date: 20240927
  Receipt Date: 20241024
  Transmission Date: 20250115
  Serious: Yes (Hospitalization, Other)
  Sender: SANOFI AVENTIS
  Company Number: US-SA-2024SA278583

PATIENT
  Age: 57 Year
  Sex: Female

DRUGS (2)
  1. DUPIXENT [Suspect]
     Active Substance: DUPILUMAB
     Indication: Neurodermatitis
     Dosage: 600 MG, 1X
     Route: 058
     Dates: start: 202405, end: 202405
  2. DUPIXENT [Suspect]
     Active Substance: DUPILUMAB
     Dosage: 300 MG, QOW
     Route: 058
     Dates: start: 2024, end: 2024

REACTIONS (3)
  - Kidney infection [Unknown]
  - Urinary tract infection [Unknown]
  - Intentional dose omission [Unknown]

NARRATIVE: CASE EVENT DATE: 20240101
